FAERS Safety Report 23742544 (Version 1)
Quarter: 2024Q2

REPORT INFORMATION
  Report Type: Spontaneous
  Country: US (occurrence: US)
  Receive Date: 20240415
  Receipt Date: 20240415
  Transmission Date: 20240715
  Serious: Yes (Hospitalization)
  Sender: FDA-Public Use
  Company Number: US-PFIZER INC-PV202400048239

PATIENT
  Age: 60 Year
  Sex: Male

DRUGS (4)
  1. ALPROSTADIL [Suspect]
     Active Substance: ALPROSTADIL
     Indication: Erectile dysfunction
  2. VIAGRA [Suspect]
     Active Substance: SILDENAFIL CITRATE
     Indication: Erectile dysfunction
  3. PAPAVERINE [Suspect]
     Active Substance: PAPAVERINE
     Indication: Erectile dysfunction
  4. PHENTOLAMINE [Suspect]
     Active Substance: PHENTOLAMINE
     Indication: Erectile dysfunction

REACTIONS (2)
  - Intentional product misuse [Unknown]
  - Priapism [Unknown]
